FAERS Safety Report 9964120 (Version 2)
Quarter: 2014Q2

REPORT INFORMATION
  Report Type: Report from Study
  Country: BR (occurrence: BR)
  Receive Date: 20140305
  Receipt Date: 20140418
  Transmission Date: 20141212
  Serious: Yes (Hospitalization, Other)
  Sender: FDA-Public Use
  Company Number: PHHY2014BR026048

PATIENT
  Age: 86 Year
  Sex: Female
  Weight: 67 kg

DRUGS (6)
  1. EXELON PATCH [Suspect]
     Indication: DEMENTIA
     Dosage: 1 DF, DAILY
     Route: 062
     Dates: start: 201305, end: 201310
  2. FLUOXETINE [Suspect]
     Indication: DEPRESSION
     Dosage: 1 DF, DAILY
     Dates: start: 2009, end: 2013
  3. LEXAPRO [Suspect]
     Indication: DEPRESSION
     Dosage: 10 DROPS
     Dates: start: 201304, end: 201310
  4. PANTOCAL [Concomitant]
     Indication: PROPHYLAXIS
     Dosage: ONCE A DAY
     Dates: start: 201307
  5. VERAPAMIL HYDROCHLORIDE [Concomitant]
     Indication: MITRAL VALVE DISEASE
     Dosage: ONCE A DAY
  6. VITAMIIN C [Concomitant]
     Dosage: ONCE A DAY

REACTIONS (4)
  - Pneumonia [Recovering/Resolving]
  - Aphonia [Not Recovered/Not Resolved]
  - Urinary tract infection [Recovering/Resolving]
  - Drug ineffective [Unknown]
